FAERS Safety Report 8876185 (Version 1)
Quarter: 2012Q4

REPORT INFORMATION
  Report Type: 
  Country: US (occurrence: US)
  Receive Date: 20121023
  Receipt Date: 20121023
  Transmission Date: 20130627
  Serious: No
  Sender: FDA-Public Use
  Company Number: US-ASTRAZENECA-2012SE78446

PATIENT
  Age: 48 Year
  Sex: Male

DRUGS (8)
  1. SEROQUEL XR [Suspect]
     Indication: SLEEP DISORDER
     Route: 048
  2. SEROQUEL XR [Suspect]
     Indication: PAIN
     Route: 048
  3. SEROQUEL XR [Suspect]
     Indication: PANIC ATTACK
     Route: 048
  4. SEROQUEL XR [Suspect]
     Indication: ANXIETY
     Route: 048
  5. SEROQUEL XR [Suspect]
     Indication: SLEEP DISORDER
     Route: 048
  6. SEROQUEL XR [Suspect]
     Indication: PAIN
     Route: 048
  7. SEROQUEL XR [Suspect]
     Indication: PANIC ATTACK
     Route: 048
  8. SEROQUEL XR [Suspect]
     Indication: ANXIETY
     Route: 048

REACTIONS (6)
  - Insomnia [Unknown]
  - Emotional distress [Unknown]
  - Pain [Unknown]
  - Drug dose omission [Unknown]
  - Off label use [Unknown]
  - Drug ineffective [Unknown]
